FAERS Safety Report 24979945 (Version 1)
Quarter: 2025Q1

REPORT INFORMATION
  Report Type: Spontaneous
  Country: IL (occurrence: IL)
  Receive Date: 20250218
  Receipt Date: 20250218
  Transmission Date: 20250409
  Serious: Yes (Life-Threatening, Other)
  Sender: GILEAD
  Company Number: IL-GILEAD-2025-0703881

PATIENT
  Age: 67 Year
  Sex: Female

DRUGS (4)
  1. TRODELVY [Suspect]
     Active Substance: SACITUZUMAB GOVITECAN-HZIY
     Indication: Neoplasm malignant
     Route: 065
     Dates: start: 20240602
  2. FULPHILA [Concomitant]
     Active Substance: PEGFILGRASTIM-JMDB
  3. ACETAMINOPHEN\CAFFEINE\CODEINE PHOSPHATE [Concomitant]
     Active Substance: ACETAMINOPHEN\CAFFEINE\CODEINE PHOSPHATE
  4. XGEVA [Concomitant]
     Active Substance: DENOSUMAB

REACTIONS (2)
  - Cough [Unknown]
  - Neutropenia [Unknown]
